FAERS Safety Report 8984283 (Version 1)
Quarter: 2012Q4

REPORT INFORMATION
  Report Type: Spontaneous
  Country: US (occurrence: None)
  Receive Date: 20121214
  Receipt Date: 20121214
  Transmission Date: 20130627
  Serious: Yes (Other)
  Sender: FDA-Public Use
  Company Number: US-DEXPHARM-20121770

PATIENT
  Sex: Male

DRUGS (3)
  1. OMEPRAZOLE [Suspect]
  2. METHOTREXATE [Suspect]
  3. LEUCOVORIN [Concomitant]

REACTIONS (2)
  - Drug interaction [None]
  - Drug level increased [None]
